FAERS Safety Report 15057971 (Version 1)
Quarter: 2018Q2

REPORT INFORMATION
  Report Type: Spontaneous
  Country: GB (occurrence: GB)
  Receive Date: 20180625
  Receipt Date: 20180625
  Transmission Date: 20180711
  Serious: Yes (Other)
  Sender: FDA-Public Use
  Company Number: GB-TEVA-2018-GB-912411

PATIENT
  Age: 34 Year
  Sex: Female

DRUGS (1)
  1. FLUCONAZOLE. [Suspect]
     Active Substance: FLUCONAZOLE
     Route: 048

REACTIONS (4)
  - Palpitations [Recovering/Resolving]
  - Rash generalised [Recovering/Resolving]
  - Pyrexia [Recovering/Resolving]
  - Periorbital oedema [Recovering/Resolving]
